FAERS Safety Report 12230906 (Version 1)
Quarter: 2016Q2

REPORT INFORMATION
  Report Type: Spontaneous
  Country: US (occurrence: US)
  Receive Date: 20160401
  Receipt Date: 20160401
  Transmission Date: 20160815
  Serious: No
  Sender: FDA-Public Use
  Company Number: US-BAYER-2016-061759

PATIENT
  Age: 65 Year
  Sex: Female
  Weight: 68.27 kg

DRUGS (1)
  1. ZEGERID OTC CAPSULES [Suspect]
     Active Substance: OMEPRAZOLE\SODIUM BICARBONATE
     Indication: DYSPEPSIA
     Dosage: 1 DF, ONCE
     Route: 048
     Dates: start: 20160329, end: 20160329

REACTIONS (2)
  - Product difficult to swallow [None]
  - Wrong technique in product usage process [None]

NARRATIVE: CASE EVENT DATE: 20160329
